FAERS Safety Report 6768628-1 (Version None)
Quarter: 2010Q2

REPORT INFORMATION
  Report Type: 
  Country: None (occurrence: None)
  Receive Date: 20100614
  Receipt Date: 20100604
  Transmission Date: 20101027
  Serious: Yes (Hospitalization, Other)
  Sender: FDA-Public Use
  Company Number: IT-PFIZER INC-2010063272

PATIENT
  Age: 76 Year
  Sex: Female

DRUGS (5)
  1. CARDURA [Suspect]
     Indication: HYPERTENSION
     Dosage: 4 MG
     Route: 048
     Dates: start: 20100330, end: 20100330
  2. CORDARONE [Suspect]
     Dosage: 200 MG
     Route: 048
     Dates: start: 20090330, end: 20100330
  3. RAMIPRIL [Concomitant]
     Dosage: 5 MG
     Route: 048
     Dates: start: 20090330, end: 20100330
  4. ATENOLOL [Concomitant]
     Dosage: 100 MG
     Route: 048
     Dates: start: 20090330, end: 20100330
  5. ASPIRIN [Concomitant]
     Dosage: 100 MG
     Route: 048
     Dates: start: 20090330, end: 20100330

REACTIONS (1)
  - PRESYNCOPE [None]
